FAERS Safety Report 15634646 (Version 4)
Quarter: 2019Q1

REPORT INFORMATION
  Report Type: Report from Study
  Country: US (occurrence: US)
  Receive Date: 20181119
  Receipt Date: 20190125
  Transmission Date: 20190417
  Serious: Yes (Hospitalization)
  Sender: FDA-Public Use
  Company Number: US-ACTELION-A-NJ2016-145181

PATIENT
  Age: 33 Year
  Sex: Female
  Weight: 47.62 kg

DRUGS (6)
  1. WARFARIN [Concomitant]
     Active Substance: WARFARIN
  2. VELETRI [Suspect]
     Active Substance: EPOPROSTENOL
     Dosage: 81.8 MG/KG, PER MIN
     Route: 042
     Dates: start: 20110609
  3. VELETRI [Suspect]
     Active Substance: EPOPROSTENOL
     Dosage: UNK
     Route: 042
  4. VELETRI [Suspect]
     Active Substance: EPOPROSTENOL
     Dosage: 95 NG/KG, PER MIN
     Route: 042
  5. REVATIO [Concomitant]
     Active Substance: SILDENAFIL CITRATE
  6. VELETRI [Suspect]
     Active Substance: EPOPROSTENOL
     Indication: PULMONARY ARTERIAL HYPERTENSION
     Dosage: 98 NG/KG, PER MIN
     Route: 042

REACTIONS (16)
  - Heart and lung transplant [Unknown]
  - Fluid overload [Unknown]
  - Dyspnoea [Unknown]
  - Catheter site pain [Unknown]
  - Asthenia [Unknown]
  - Transplant evaluation [Unknown]
  - Device infusion issue [Unknown]
  - Pain [Unknown]
  - Weight increased [Unknown]
  - Fluid retention [Unknown]
  - Chest pain [Unknown]
  - Device breakage [Unknown]
  - Condition aggravated [Unknown]
  - Catheter site haemorrhage [Unknown]
  - Hospitalisation [Unknown]
  - Malaise [Unknown]

NARRATIVE: CASE EVENT DATE: 20161027
